FAERS Safety Report 9236717 (Version 1)
Quarter: 2013Q2

REPORT INFORMATION
  Report Type: Spontaneous
  Country: FR (occurrence: FR)
  Receive Date: 20130417
  Receipt Date: 20130417
  Transmission Date: 20140414
  Serious: Yes (Hospitalization)
  Sender: FDA-Public Use
  Company Number: FR-GLAXOSMITHKLINE-B0861473A

PATIENT
  Age: 78 Year
  Sex: Female

DRUGS (5)
  1. AUGMENTIN [Suspect]
     Indication: PNEUMONIA
     Dosage: 1G THREE TIMES PER DAY
     Route: 048
     Dates: start: 20121205, end: 20121214
  2. DAFALGAN [Suspect]
     Indication: PYREXIA
     Dosage: 1000MG TWICE PER DAY
     Route: 048
     Dates: start: 20121206, end: 20121216
  3. DIFFU K [Suspect]
     Indication: HYPOKALAEMIA
     Dosage: 600MG THREE TIMES PER DAY
     Route: 048
     Dates: start: 20121208, end: 20121216
  4. LOVENOX [Suspect]
     Indication: THROMBOSIS PROPHYLAXIS
     Dosage: .6ML TWICE PER DAY
     Route: 058
     Dates: start: 20121207, end: 20121216
  5. NACL 0.9% [Concomitant]
     Dosage: 50ML THREE TIMES PER DAY
     Route: 042
     Dates: start: 20121205

REACTIONS (11)
  - Jaundice cholestatic [Recovered/Resolved]
  - Drug-induced liver injury [Recovered/Resolved]
  - General physical health deterioration [Recovered/Resolved]
  - Decreased appetite [Recovered/Resolved]
  - Asthenia [Recovered/Resolved]
  - Weight decreased [Unknown]
  - Pruritus [Recovered/Resolved]
  - Nausea [Recovered/Resolved]
  - Abdominal pain upper [Recovered/Resolved]
  - Chromaturia [Recovered/Resolved]
  - Faeces discoloured [Recovered/Resolved]
